FAERS Safety Report 4341208-3 (Version None)
Quarter: 2004Q1

REPORT INFORMATION
  Report Type: 
  Country: None (occurrence: None)
  Receive Date: 20040329
  Receipt Date: 20040224
  Transmission Date: 20041129
  Serious: No
  Sender: FDA-Public Use
  Company Number: 04P-163-0251412-00

PATIENT
  Age: 59 Year
  Sex: Female
  Weight: 89.8122 kg

DRUGS (14)
  1. HUMIRA [Suspect]
     Indication: RHEUMATOID ARTHRITIS
     Dosage: 40 MG, 1 IN 2 WK, SUBCUTANEOUS
     Route: 058
     Dates: start: 20031101
  2. METHOTREXATE [Concomitant]
  3. FOLIC ACID [Concomitant]
  4. PREDNISONE [Concomitant]
  5. LANSOPRAZOLE [Concomitant]
  6. GLYCOPYRRONIUM BROMIDE [Concomitant]
  7. ATENOLOL [Concomitant]
  8. TORSEMIDE [Concomitant]
  9. ESTRADIOL [Concomitant]
  10. MAGNESIUM [Concomitant]
  11. MULTI-VITAMINS [Concomitant]
  12. GLIPIZIDE [Concomitant]
  13. OXYCODONE HCL [Concomitant]
  14. ACIDOPHILUS [Concomitant]

REACTIONS (1)
  - SINUSITIS [None]
